FAERS Safety Report 21043756 (Version 1)
Quarter: 2022Q3

REPORT INFORMATION
  Report Type: Spontaneous
  Country: US (occurrence: US)
  Receive Date: 20220705
  Receipt Date: 20220705
  Transmission Date: 20221027
  Serious: No
  Sender: FDA-Public Use
  Company Number: US-SAREPTA THERAPEUTICS INC.-SRP2022-002054

PATIENT
  Age: 15 Year
  Sex: Male

DRUGS (3)
  1. EXONDYS 51 [Suspect]
     Active Substance: ETEPLIRSEN
     Indication: Duchenne muscular dystrophy
     Dosage: 2200 MILLIGRAM, WEEKLY
     Route: 042
     Dates: start: 20210612, end: 20220128
  2. EXONDYS 51 [Suspect]
     Active Substance: ETEPLIRSEN
     Dosage: 2200 MILLIGRAM, WEEKLY
     Route: 042
     Dates: start: 20220211
  3. COVID-19 VACCINE [Concomitant]
     Indication: COVID-19 immunisation
     Dosage: 3RD DOSE
     Dates: start: 202202, end: 202202

REACTIONS (3)
  - Exposure to SARS-CoV-2 [Unknown]
  - Product dose omission issue [Unknown]
  - No adverse event [Unknown]

NARRATIVE: CASE EVENT DATE: 20220204
